FAERS Safety Report 8152052-3 (Version None)
Quarter: 2012Q1

REPORT INFORMATION
  Report Type: 
  Country: None (occurrence: None)
  Receive Date: 20120215
  Receipt Date: 20120215
  Transmission Date: 20120608
  Serious: Yes (Hospitalization)
  Sender: FDA-Public Use
  Company Number: None

PATIENT
  Age: 91 Year
  Sex: Male
  Weight: 86.6 kg

DRUGS (1)
  1. ACETAMINOPHEN AND HYDROCODONE BITARTRATE [Suspect]
     Indication: PROCEDURAL PAIN
     Dosage: MG PO
     Route: 048
     Dates: start: 20120113, end: 20120118

REACTIONS (5)
  - RENAL FAILURE ACUTE [None]
  - URINARY INCONTINENCE [None]
  - DYSURIA [None]
  - BLADDER DILATATION [None]
  - OEDEMA PERIPHERAL [None]
